FAERS Safety Report 5691897-6 (Version None)
Quarter: 2008Q1

REPORT INFORMATION
  Report Type: 
  Country: None (occurrence: None)
  Receive Date: 20080331
  Receipt Date: 20080313
  Transmission Date: 20080703
  Serious: Yes (Other)
  Sender: FDA-Public Use
  Company Number: SPV1-2008-00696

PATIENT
  Age: 71 Year
  Sex: Male

DRUGS (1)
  1. MIDON(MIDODRINE HYDROCHLORIDE) TABLET [Suspect]
     Dosage: 2.5 MG, DAILY,
     Dates: start: 20080116, end: 20080101

REACTIONS (1)
  - ATRIAL FIBRILLATION [None]
